FAERS Safety Report 7528316-0 (Version None)
Quarter: 2011Q2

REPORT INFORMATION
  Report Type: 
  Country: None (occurrence: None)
  Receive Date: 20110607
  Receipt Date: 20110606
  Transmission Date: 20111010
  Serious: Yes (Hospitalization)
  Sender: FDA-Public Use
  Company Number: IT-SANOFI-AVENTIS-2011SA035192

PATIENT
  Age: 68 Year
  Sex: Female

DRUGS (8)
  1. LORTAAN [Suspect]
     Indication: ESSENTIAL HYPERTENSION
     Route: 048
     Dates: start: 20110403, end: 20110503
  2. ASPIRIN [Concomitant]
     Route: 065
  3. CORDARONE [Concomitant]
     Route: 065
  4. LASIX [Suspect]
     Indication: ESSENTIAL HYPERTENSION
     Route: 048
     Dates: start: 20110403, end: 20110503
  5. BISOPROLOL FUMARATE [Concomitant]
     Route: 065
  6. LANSOX [Concomitant]
     Route: 048
  7. RAMIPRIL [Suspect]
     Route: 048
     Dates: start: 20110403, end: 20110503
  8. SIVASTIN [Concomitant]
     Route: 048

REACTIONS (2)
  - PULMONARY OEDEMA [None]
  - CONDITION AGGRAVATED [None]
